FAERS Safety Report 8969531 (Version 1)
Quarter: 2012Q4

REPORT INFORMATION
  Report Type: 
  Country: US (occurrence: US)
  Receive Date: 20121218
  Receipt Date: 20121218
  Transmission Date: 20130627
  Serious: Yes (Other)
  Sender: FDA-Public Use
  Company Number: US-RANBAXY-2012US-62963

PATIENT
  Sex: Male

DRUGS (1)
  1. ATORVASTATIN [Suspect]
     Indication: BLOOD CHOLESTEROL
     Dosage: 80 mg, qd
     Route: 065
     Dates: start: 20121004

REACTIONS (2)
  - Gastric haemorrhage [Recovering/Resolving]
  - Inflammation [Recovering/Resolving]
